FAERS Safety Report 6793988-5 (Version None)
Quarter: 2010Q2

REPORT INFORMATION
  Report Type: 
  Country: None (occurrence: None)
  Receive Date: 20100624
  Receipt Date: 20090504
  Transmission Date: 20101027
  Serious: Yes (Hospitalization)
  Sender: FDA-Public Use
  Company Number: US-PFIZER INC-2009183547

PATIENT
  Age: 61 Year
  Sex: Male

DRUGS (2)
  1. SOLU-MEDROL [Suspect]
     Indication: MYASTHENIA GRAVIS
     Dosage: 1 G, 1X/DAY
     Route: 042
     Dates: start: 20090224
  2. IMMUNE GLOBULIN (HUMAN) [Suspect]
     Indication: MYASTHENIA GRAVIS
     Dosage: 40 GM; 1X
     Route: 042
     Dates: start: 20090224, end: 20090224

REACTIONS (1)
  - BRONCHOSPASM [None]
